FAERS Safety Report 7090183-X (Version None)
Quarter: 2010Q4

REPORT INFORMATION
  Report Type: 
  Country: None (occurrence: None)
  Receive Date: 20101104
  Receipt Date: 20101104
  Transmission Date: 20110411
  Serious: Yes (Other)
  Sender: FDA-Public Use
  Company Number: None

PATIENT
  Age: 45 Year
  Sex: Male
  Weight: 83.9154 kg

DRUGS (1)
  1. CYCLOKAPRON [Suspect]
     Indication: HAEMORRHAGE
     Dosage: OFF-LABEL USE PROMOTION

REACTIONS (2)
  - OFF LABEL USE [None]
  - PRODUCT QUALITY ISSUE [None]
